FAERS Safety Report 8452545-5 (Version None)
Quarter: 2012Q2

REPORT INFORMATION
  Report Type: 
  Country: None (occurrence: None)
  Receive Date: 20120620
  Receipt Date: 20120521
  Transmission Date: 20120825
  Serious: No
  Sender: FDA-Public Use
  Company Number: US-VERTEX PHARMACEUTICALS INC.-AE-2012-005435

PATIENT
  Sex: Female
  Weight: 86.26 kg

DRUGS (5)
  1. PEGASYS [Concomitant]
     Indication: HEPATITIS C
     Route: 058
     Dates: start: 20120413
  2. RIBAVIRIN [Concomitant]
     Indication: HEPATITIS C
     Dates: start: 20120413
  3. LEVOTHYROXINE SODIUM [Concomitant]
     Indication: HYPOTHYROIDISM
     Route: 048
  4. HYDROCHLOROTHIAZIDE [Concomitant]
     Indication: HYPERTENSION
  5. INCIVEK [Suspect]
     Indication: HEPATITIS C
     Route: 048
     Dates: start: 20120413

REACTIONS (8)
  - INJECTION SITE SWELLING [None]
  - HEADACHE [None]
  - JOINT SWELLING [None]
  - INJECTION SITE ERYTHEMA [None]
  - HAEMOGLOBIN DECREASED [None]
  - CHILLS [None]
  - INFLUENZA LIKE ILLNESS [None]
  - RASH PAPULAR [None]
